FAERS Safety Report 7132667-1 (Version None)
Quarter: 2010Q4

REPORT INFORMATION
  Report Type: 
  Country: None (occurrence: None)
  Receive Date: 20101202
  Receipt Date: 20101123
  Transmission Date: 20110411
  Serious: Yes (Other)
  Sender: FDA-Public Use
  Company Number: US-JNJFOC-20101101024

PATIENT
  Sex: Female

DRUGS (1)
  1. PANCREAZE [Suspect]
     Indication: PANCREATIC DISORDER
     Route: 048

REACTIONS (2)
  - TYPE 2 DIABETES MELLITUS [None]
  - WEIGHT DECREASED [None]
